FAERS Safety Report 6314459-6 (Version None)
Quarter: 2009Q3

REPORT INFORMATION
  Report Type: 
  Country: None (occurrence: None)
  Receive Date: 20090819
  Receipt Date: 20090813
  Transmission Date: 20100115
  Serious: Yes (Hospitalization)
  Sender: FDA-Public Use
  Company Number: KR-BRISTOL-MYERS SQUIBB COMPANY-14740773

PATIENT

DRUGS (1)
  1. BARACLUDE [Suspect]

REACTIONS (2)
  - ALANINE AMINOTRANSFERASE INCREASED [None]
  - ALPHA 1 FOETOPROTEIN INCREASED [None]
